FAERS Safety Report 9528409 (Version 2)
Quarter: 2013Q4

REPORT INFORMATION
  Report Type: Spontaneous
  Country: BR (occurrence: BR)
  Receive Date: 20130917
  Receipt Date: 20131008
  Transmission Date: 20140711
  Serious: Yes (Other)
  Sender: FDA-Public Use
  Company Number: BR-PFIZER INC-2013261264

PATIENT
  Age: 53 Year
  Sex: Female

DRUGS (1)
  1. DETRUSITOL LA [Suspect]
     Indication: URINARY INCONTINENCE
     Dosage: UNSPECIFIED DOSE, 1X/DAY
     Route: 048
     Dates: start: 2009, end: 2009

REACTIONS (2)
  - No adverse event [Unknown]
  - No adverse event [Not Recovered/Not Resolved]
